FAERS Safety Report 5534571-9 (Version None)
Quarter: 2007Q4

REPORT INFORMATION
  Report Type: 
  Country: None (occurrence: None)
  Receive Date: 20071204
  Receipt Date: 20071204
  Transmission Date: 20080405
  Serious: No
  Sender: FDA-Public Use
  Company Number: None

PATIENT
  Age: 21 Year
  Sex: Male
  Weight: 58.9676 kg

DRUGS (1)
  1. SINGULAIR [Suspect]
     Indication: HOUSE DUST ALLERGY
     Dosage: 10MG  ONCE A DAY
     Dates: start: 20061212, end: 20070712

REACTIONS (1)
  - EAR PAIN [None]
